FAERS Safety Report 9033203 (Version 1)
Quarter: 2013Q1

REPORT INFORMATION
  Report Type: Spontaneous
  Country: PK (occurrence: PK)
  Receive Date: 20130128
  Receipt Date: 20130128
  Transmission Date: 20140127
  Serious: Yes (Death)
  Sender: FDA-Public Use
  Company Number: PHHY2013PK007786

PATIENT
  Age: 74 Year
  Sex: Male
  Weight: 50 kg

DRUGS (1)
  1. EXELON [Suspect]
     Indication: DEMENTIA ALZHEIMER^S TYPE
     Dosage: 4.5 MG, QD
     Route: 048
     Dates: start: 20120327, end: 20130108

REACTIONS (1)
  - Chronic obstructive pulmonary disease [Fatal]
